FAERS Safety Report 6415951-6 (Version None)
Quarter: 2009Q4

REPORT INFORMATION
  Report Type: 
  Country: None (occurrence: None)
  Receive Date: 20091027
  Receipt Date: 20091016
  Transmission Date: 20100525
  Serious: Yes (Hospitalization)
  Sender: FDA-Public Use
  Company Number: B0596070A

PATIENT
  Age: 77 Year
  Sex: Female

DRUGS (6)
  1. VALTREX [Suspect]
     Indication: HERPES ZOSTER
     Dosage: 1000MG THREE TIMES PER DAY
     Route: 048
     Dates: start: 20080816, end: 20080820
  2. VOLTAREN [Suspect]
     Indication: HERPES ZOSTER
     Dosage: 25MG THREE TIMES PER DAY
     Route: 048
     Dates: start: 20080816, end: 20080820
  3. MUCOSTA [Concomitant]
     Indication: ABDOMINAL DISCOMFORT
     Dosage: 300MG PER DAY
     Route: 048
  4. NORVASC [Concomitant]
     Indication: HYPERTENSION
     Dosage: 2.5MG PER DAY
     Route: 048
  5. EVISTA [Concomitant]
     Indication: OSTEOPOROSIS
     Dosage: 60MG PER DAY
     Route: 048
  6. PLATIBIT [Concomitant]
     Indication: OSTEOPOROSIS
     Route: 048

REACTIONS (10)
  - ALTERED STATE OF CONSCIOUSNESS [None]
  - BLOOD CREATININE INCREASED [None]
  - CALCULUS URETERIC [None]
  - DRUG ABUSE [None]
  - DYSPNOEA [None]
  - ELECTROLYTE IMBALANCE [None]
  - HYDRONEPHROSIS [None]
  - MALAISE [None]
  - RENAL FAILURE ACUTE [None]
  - SEDATION [None]
